FAERS Safety Report 4626649-9 (Version None)
Quarter: 2005Q1

REPORT INFORMATION
  Report Type: 
  Country: None (occurrence: None)
  Receive Date: 20050330
  Receipt Date: 20050315
  Transmission Date: 20050727
  Serious: Yes (Other)
  Sender: FDA-Public Use
  Company Number: 200503IM000074

PATIENT
  Sex: Male

DRUGS (2)
  1. ACTIMMUNE [Suspect]
     Indication: INTERSTITIAL LUNG DISEASE
     Dosage: 200UG, TIW, SUBCUTANEOUS
     Route: 058
     Dates: start: 20030101
  2. PREDNISONE TAB [Concomitant]

REACTIONS (1)
  - LUNG ABSCESS [None]
